FAERS Safety Report 16861258 (Version 7)
Quarter: 2020Q1

REPORT INFORMATION
  Report Type: Report from Study
  Country: None (occurrence: US)
  Receive Date: 20190927
  Receipt Date: 20200127
  Transmission Date: 20200409
  Serious: Yes (Hospitalization, Other)
  Sender: FDA-Public Use
  Company Number: US-ABBVIE-19K-163-2940598-00

PATIENT
  Sex: Female
  Weight: 56.75 kg

DRUGS (5)
  1. SYNTHROID [Concomitant]
     Active Substance: LEVOTHYROXINE SODIUM
     Indication: PRODUCT USED FOR UNKNOWN INDICATION
  2. HUMIRA [Suspect]
     Active Substance: ADALIMUMAB
     Indication: RHEUMATOID ARTHRITIS
     Route: 058
     Dates: start: 2018, end: 201908
  3. PREDNISONE. [Concomitant]
     Active Substance: PREDNISONE
     Indication: PRODUCT USED FOR UNKNOWN INDICATION
  4. PREDNISONE. [Concomitant]
     Active Substance: PREDNISONE
     Indication: PRODUCT USED FOR UNKNOWN INDICATION
  5. SYNTHROID [Concomitant]
     Active Substance: LEVOTHYROXINE SODIUM
     Indication: PRODUCT USED FOR UNKNOWN INDICATION

REACTIONS (17)
  - Seizure [Unknown]
  - Meningitis [Unknown]
  - Diabetes mellitus [Unknown]
  - Headache [Unknown]
  - Memory impairment [Unknown]
  - Influenza [Unknown]
  - Nasopharyngitis [Unknown]
  - Pituitary tumour [Unknown]
  - Hospitalisation [Unknown]
  - Malaise [Not Recovered/Not Resolved]
  - White blood cell count increased [Unknown]
  - Dizziness [Not Recovered/Not Resolved]
  - Speech disorder [Unknown]
  - Thirst [Unknown]
  - Renal failure [Unknown]
  - Nausea [Unknown]
  - Sleep disorder [Unknown]
